FAERS Safety Report 4282447-X (Version None)
Quarter: 2004Q1

REPORT INFORMATION
  Report Type: 
  Country: None (occurrence: None)
  Receive Date: 20040120
  Receipt Date: 20030203
  Transmission Date: 20041129
  Serious: Yes (Hospitalization)
  Sender: FDA-Public Use
  Company Number: 03P-163-0210474-00

PATIENT
  Age: 3 Year
  Sex: Female
  Weight: 14.5151 kg

DRUGS (3)
  1. OMNICEF [Suspect]
     Indication: OTITIS MEDIA
     Dosage: 62.5 MG, 2 IN 1 D, PER ORAL
     Route: 048
     Dates: start: 20010102, end: 20010109
  2. IBUPROFEN [Concomitant]
  3. SALBUTAMOL [Concomitant]

REACTIONS (1)
  - CLOSTRIDIUM COLITIS [None]
